FAERS Safety Report 16756591 (Version 1)
Quarter: 2019Q3

REPORT INFORMATION
  Report Type: Spontaneous
  Country: CN (occurrence: CN)
  Receive Date: 20190829
  Receipt Date: 20190829
  Transmission Date: 20191005
  Serious: Yes (Death, Hospitalization)
  Sender: FDA-Public Use
  Company Number: CN-CELGENEUS-CHN-20190207672

PATIENT
  Age: 69 Year
  Sex: Male
  Weight: 69 kg

DRUGS (3)
  1. CARBOPLATIN. [Concomitant]
     Active Substance: CARBOPLATIN
     Indication: SQUAMOUS CELL CARCINOMA OF LUNG
     Dosage: 596 MILLIGRAM, Q3WK C1D1
     Route: 042
     Dates: start: 20180824, end: 20181022
  2. ABRAXANE [Suspect]
     Active Substance: PACLITAXEL
     Indication: SQUAMOUS CELL CARCINOMA OF LUNG
     Dosage: 180 MILLIGRAM, Q3WK C1D1
     Route: 042
     Dates: start: 20180824, end: 20181022
  3. BGB-A317/TISLELIZUMAB [Suspect]
     Active Substance: TISLELIZUMAB
     Indication: SQUAMOUS CELL CARCINOMA OF LUNG
     Dosage: 200 MILLIGRAM, Q3WK C1D1
     Route: 042
     Dates: start: 20180824, end: 20190214

REACTIONS (3)
  - Lung infection [Fatal]
  - Respiratory failure [Fatal]
  - Interstitial lung disease [Unknown]

NARRATIVE: CASE EVENT DATE: 20190214
